FAERS Safety Report 4918867-7 (Version None)
Quarter: 2006Q1

REPORT INFORMATION
  Report Type: 
  Country: None (occurrence: None)
  Receive Date: 20060222
  Receipt Date: 20060106
  Transmission Date: 20060701
  Serious: Yes (Death)
  Sender: FDA-Public Use
  Company Number: US-MERCK-0601USA00784

PATIENT
  Age: 68 Year
  Sex: Female
  Weight: 75 kg

DRUGS (1)
  1. VIOXX [Suspect]
     Indication: PAIN MANAGEMENT
     Route: 048
     Dates: start: 20030101, end: 20040102

REACTIONS (6)
  - BACK PAIN [None]
  - EMOTIONAL DISORDER [None]
  - HYPERTENSION [None]
  - MENTAL DISORDER [None]
  - MYOCARDIAL INFARCTION [None]
  - SHOULDER PAIN [None]
